FAERS Safety Report 17645993 (Version 2)
Quarter: 2020Q2

REPORT INFORMATION
  Report Type: Report from Study
  Country: US (occurrence: US)
  Receive Date: 20200408
  Receipt Date: 20200413
  Transmission Date: 20200713
  Serious: No
  Sender: FDA-Public Use
  Company Number: US-SA-2020SA086622

PATIENT
  Age: 50 Year
  Sex: Male
  Weight: 63.5 kg

DRUGS (2)
  1. DUPILUMAB [Suspect]
     Active Substance: DUPILUMAB
     Indication: DERMATITIS ATOPIC
     Dosage: 300 MG, QOW
     Route: 058
     Dates: start: 20200403
  2. DUPILUMAB [Suspect]
     Active Substance: DUPILUMAB
     Indication: ECZEMA
     Dosage: 600 MG, 1X
     Route: 058
     Dates: start: 20200319, end: 20200319

REACTIONS (3)
  - Injection site pain [Recovered/Resolved]
  - Pruritus [Recovering/Resolving]
  - Product preparation error [Unknown]

NARRATIVE: CASE EVENT DATE: 20200319
